FAERS Safety Report 8117834-2 (Version None)
Quarter: 2012Q1

REPORT INFORMATION
  Report Type: 
  Country: None (occurrence: None)
  Receive Date: 20120202
  Receipt Date: 20120123
  Transmission Date: 20120608
  Serious: Yes (Other)
  Sender: FDA-Public Use
  Company Number: 1000025806

PATIENT
  Age: 39 Year
  Sex: Female

DRUGS (3)
  1. VIIBRYD [Suspect]
     Indication: DEPRESSION
     Dosage: 10 MG (10 MG, 1 IN 1 D), ORAL
     Route: 048
     Dates: start: 20111109, end: 20111115
  2. DEPLIN (CALCIUM LEVOMEFOLATE) (CALCIUM LEVOMEFOLATE) [Concomitant]
  3. MOTRIN [Concomitant]

REACTIONS (4)
  - UNEVALUABLE EVENT [None]
  - HAEMATOCHEZIA [None]
  - DIARRHOEA [None]
  - NAUSEA [None]
